FAERS Safety Report 14777139 (Version 1)
Quarter: 2018Q2

REPORT INFORMATION
  Report Type: Spontaneous
  Country: US (occurrence: US)
  Receive Date: 20180419
  Receipt Date: 20180419
  Transmission Date: 20180711
  Serious: No
  Sender: FDA-Public Use
  Company Number: US-TEVA-800876ACC

PATIENT
  Age: 52 Year
  Sex: Female

DRUGS (1)
  1. OXYCODONE HYDROCHLORIDE. [Suspect]
     Active Substance: OXYCODONE HYDROCHLORIDE
     Indication: SPINAL CORD INJURY
     Dates: start: 201708

REACTIONS (2)
  - Oral discomfort [Recovered/Resolved]
  - Tongue discomfort [Unknown]

NARRATIVE: CASE EVENT DATE: 20170822
